FAERS Safety Report 4365075-7 (Version None)
Quarter: 2004Q2

REPORT INFORMATION
  Report Type: 
  Country: None (occurrence: None)
  Receive Date: 20040521
  Receipt Date: 20031024
  Transmission Date: 20050107
  Serious: No
  Sender: FDA-Public Use
  Company Number: PHBS2003JP11938

PATIENT
  Age: 78 Year
  Sex: Male

DRUGS (8)
  1. RIFAMPICIN [Suspect]
     Indication: LEPROMATOUS LEPROSY
  2. DAPSONE [Suspect]
     Indication: LEPROMATOUS LEPROSY
  3. STREPTOMYCIN [Concomitant]
  4. CLOFAZIMINE (CLOFAZIMINE) [Concomitant]
  5. ISONIAZID [Concomitant]
  6. PROTHIONAMIDE (PROTHIONAMIDE) [Concomitant]
  7. OFLOXACIN [Suspect]
     Indication: LEPROMATOUS LEPROSY
  8. SPARFLOXACIN [Suspect]
     Indication: LEPROMATOUS LEPROSY

REACTIONS (3)
  - DISEASE RECURRENCE [None]
  - MEDICATION ERROR [None]
  - MULTIPLE-DRUG RESISTANCE [None]
